FAERS Safety Report 6450739-1 (Version None)
Quarter: 2009Q4

REPORT INFORMATION
  Report Type: 
  Country: None (occurrence: None)
  Receive Date: 20091123
  Receipt Date: 20091113
  Transmission Date: 20100525
  Serious: Yes (Hospitalization)
  Sender: FDA-Public Use
  Company Number: GB-ABBOTT-09P-167-0609258-00

PATIENT
  Age: 68 Year
  Sex: Male
  Weight: 97 kg

DRUGS (4)
  1. ERYTHROMYCIN BASE [Suspect]
     Indication: TOOTH INFECTION
     Route: 048
     Dates: start: 20090701
  2. BEZAFIBRATE [Suspect]
     Indication: HYPERCHOLESTEROLAEMIA
     Route: 048
  3. BENDROFLUMETHIAZIDE [Concomitant]
     Indication: HYPERTENSION
     Route: 048
  4. DOXAZOSIN [Concomitant]
     Indication: HYPERTENSION

REACTIONS (4)
  - DRUG INTERACTION [None]
  - FACIAL PARESIS [None]
  - HYPOAESTHESIA [None]
  - MUSCULAR WEAKNESS [None]
